FAERS Safety Report 18044820 (Version 1)
Quarter: 2020Q3

REPORT INFORMATION
  Report Type: Other
  Country: CA (occurrence: CA)
  Receive Date: 20200720
  Receipt Date: 20200720
  Transmission Date: 20201103
  Serious: Yes (Other)
  Sender: FDA-Public Use
  Company Number: CA-BECTON DICKINSON-2020BDN00178

PATIENT
  Age: 42 Year
  Sex: Female
  Weight: 81 kg

DRUGS (21)
  1. CIMZIA [Suspect]
     Active Substance: CERTOLIZUMAB PEGOL
     Dosage: 200 MG, 2 EVERY 1 MONTH
     Route: 058
  2. SIMPONI [Suspect]
     Active Substance: GOLIMUMAB
     Route: 058
  3. ZOPICLONE [Concomitant]
     Active Substance: ZOPICLONE
  4. ENBREL [Suspect]
     Active Substance: ETANERCEPT
     Indication: RHEUMATOID ARTHRITIS
     Route: 058
  5. COENZYME Q10 [Concomitant]
     Active Substance: DIETARY SUPPLEMENT\UBIDECARENONE
  6. IBUPROFEN. [Concomitant]
     Active Substance: IBUPROFEN
  7. CHLORHEXIDINE [Suspect]
     Active Substance: CHLORHEXIDINE
  8. ACTEMRA [Suspect]
     Active Substance: TOCILIZUMAB
  9. OMEGA 3 [DOCOSAHEXAENOIC ACID; EICOSAPENTAENOIC ACID] [Concomitant]
  10. PREDNISONE. [Concomitant]
     Active Substance: PREDNISONE
  11. CIMZIA [Suspect]
     Active Substance: CERTOLIZUMAB PEGOL
     Indication: RHEUMATOID ARTHRITIS
     Dosage: 400 MG, CYCLICAL
     Route: 058
  12. VITAMIN C [Concomitant]
     Active Substance: ASCORBIC ACID
  13. METHOTREXATE. [Suspect]
     Active Substance: METHOTREXATE
  14. ORENCIA [Suspect]
     Active Substance: ABATACEPT
  15. VENTOLIN [Concomitant]
     Active Substance: ALBUTEROL SULFATE
  16. ARAVA [Suspect]
     Active Substance: LEFLUNOMIDE
  17. ACETAMINOPHEN/ OXYCODONE HYDROCHLORIDE [Suspect]
     Active Substance: ACETAMINOPHEN\OXYCODONE HYDROCHLORIDE
  18. HYDROXYCHLOROQUINE [Concomitant]
     Active Substance: HYDROXYCHLOROQUINE
  19. PANTOPRAZOLE [Concomitant]
     Active Substance: PANTOPRAZOLE
  20. REACTINE [Concomitant]
  21. TYLENOL [Concomitant]
     Active Substance: ACETAMINOPHEN

REACTIONS (20)
  - Asthenia [Unknown]
  - Urticaria [Unknown]
  - Respiratory disorder [Unknown]
  - Headache [Unknown]
  - Night sweats [Unknown]
  - Sinusitis [Unknown]
  - Body temperature increased [Unknown]
  - Diarrhoea [Unknown]
  - Peripheral swelling [Unknown]
  - Abdominal pain upper [Unknown]
  - Insomnia [Unknown]
  - Muscle spasticity [Unknown]
  - Vomiting [Unknown]
  - Back pain [Unknown]
  - Ear pain [Unknown]
  - Rash [Unknown]
  - Joint swelling [Unknown]
  - Lower respiratory tract infection [Unknown]
  - Pain [Unknown]
  - Pruritus [Unknown]
